FAERS Safety Report 9434134 (Version 4)
Quarter: 2014Q1

REPORT INFORMATION
  Report Type: Spontaneous
  Country: US (occurrence: US)
  Receive Date: 20130801
  Receipt Date: 20140129
  Transmission Date: 20141002
  Serious: No
  Sender: FDA-Public Use
  Company Number: US-009507513-1307USA010702

PATIENT
  Sex: Male

DRUGS (1)
  1. COSOPT PF [Suspect]
     Dosage: 2 GTT, BID
     Route: 047
     Dates: start: 2013

REACTIONS (5)
  - Wrong technique in drug usage process [Unknown]
  - Product packaging quantity issue [Unknown]
  - Product closure removal difficult [Unknown]
  - Incorrect dose administered [Unknown]
  - No adverse event [Unknown]
